FAERS Safety Report 6873130-2 (Version None)
Quarter: 2010Q3

REPORT INFORMATION
  Report Type: 
  Country: None (occurrence: None)
  Receive Date: 20100721
  Receipt Date: 20100706
  Transmission Date: 20110219
  Serious: Yes (Other)
  Sender: FDA-Public Use
  Company Number: AUR-APL-2010-01743

PATIENT
  Age: 30 Year
  Sex: Male
  Weight: 136.0791 kg

DRUGS (5)
  1. ATENOLOL [Suspect]
     Indication: HEART RATE INCREASED
     Dosage: 50MG, DAILY
     Dates: start: 20060101
  2. LISINOPRIL AND HYDROCHLOROTHIAZIDE [Suspect]
     Indication: HYPERTENSION
     Dosage: 20/12.5 MG, DAILY
     Dates: start: 20060101
  3. KLONOPIN [Suspect]
     Indication: ANXIETY
     Dosage: PRN
     Dates: start: 20060101
  4. GEODON [Suspect]
     Indication: SCHIZOPHRENIA
     Dosage: 60MG, BID
     Dates: start: 20060101
  5. ZOLOFT [Concomitant]

REACTIONS (5)
  - DIABETES MELLITUS [None]
  - FATIGUE [None]
  - INCORRECT DRUG ADMINISTRATION DURATION [None]
  - TREATMENT NONCOMPLIANCE [None]
  - WEIGHT INCREASED [None]
